FAERS Safety Report 7029488-7 (Version None)
Quarter: 2010Q4

REPORT INFORMATION
  Report Type: 
  Country: None (occurrence: None)
  Receive Date: 20101005
  Receipt Date: 20100927
  Transmission Date: 20110411
  Serious: Yes (Other)
  Sender: FDA-Public Use
  Company Number: US-AMGEN-KDL442537

PATIENT
  Sex: Male
  Weight: 95.1 kg

DRUGS (11)
  1. PROCRIT [Suspect]
     Indication: PRODUCT USED FOR UNKNOWN INDICATION
     Route: 058
     Dates: start: 20100101
  2. PEGASYS [Concomitant]
     Route: 058
     Dates: start: 20100128
  3. RIBAVARIN [Concomitant]
     Route: 048
     Dates: start: 20100601
  4. NEXIUM [Concomitant]
     Route: 048
     Dates: start: 20070101
  5. POTASSIUM [Concomitant]
     Route: 048
     Dates: start: 20060101
  6. FUROSEMIDE [Concomitant]
     Route: 048
     Dates: start: 20060101
  7. LISINOPRIL [Concomitant]
     Route: 048
     Dates: start: 20060101
  8. THEOPHYLLINE [Concomitant]
     Route: 048
     Dates: start: 20060101
  9. PRO-AIR (PARKE DAVIS) [Concomitant]
     Route: 045
     Dates: start: 20060101
  10. ADVAIR DISKUS 100/50 [Concomitant]
     Route: 045
     Dates: start: 20060101
  11. MULTI-VITAMINS [Concomitant]
     Route: 048

REACTIONS (4)
  - ANORECTAL DISCOMFORT [None]
  - FAECES DISCOLOURED [None]
  - GASTROINTESTINAL HAEMORRHAGE [None]
  - PAINFUL DEFAECATION [None]
